FAERS Safety Report 25373750 (Version 1)
Quarter: 2025Q2

REPORT INFORMATION
  Report Type: Spontaneous
  Country: IT (occurrence: IT)
  Receive Date: 20250529
  Receipt Date: 20250529
  Transmission Date: 20250716
  Serious: Yes (Death, Life-Threatening, Hospitalization, Disabling, Other)
  Sender: AMGEN
  Company Number: IT-AMGEN-ITASP2025102219

PATIENT

DRUGS (1)
  1. PROLIA [Suspect]
     Active Substance: DENOSUMAB
     Indication: Product used for unknown indication
     Route: 065

REACTIONS (41)
  - Death [Fatal]
  - Ill-defined disorder [Unknown]
  - Unevaluable event [Unknown]
  - Disability [Unknown]
  - Osteonecrosis [Unknown]
  - Angioedema [Unknown]
  - Leukoplakia oral [Unknown]
  - Stevens-Johnson syndrome [Unknown]
  - Oropharyngeal neoplasm [Unknown]
  - Osteonecrosis of jaw [Unknown]
  - Tongue oedema [Unknown]
  - Gingival bleeding [Unknown]
  - Paraesthesia oral [Unknown]
  - Oropharyngeal pain [Unknown]
  - Throat tightness [Unknown]
  - Dysphagia [Unknown]
  - Gingival disorder [Unknown]
  - Palatal oedema [Unknown]
  - Oral herpes [Unknown]
  - Tooth abscess [Unknown]
  - Gingivitis [Unknown]
  - Oral candidiasis [Unknown]
  - Tonsillitis [Unknown]
  - Pain in jaw [Unknown]
  - Gingival pain [Unknown]
  - Noninfective gingivitis [Unknown]
  - Gingival hypertrophy [Unknown]
  - Oral papilloma [Unknown]
  - Oropharyngeal oedema [Unknown]
  - Stomatitis [Unknown]
  - Aphthous ulcer [Unknown]
  - Throat irritation [Unknown]
  - Hypoaesthesia oral [Unknown]
  - Oral disorder [Unknown]
  - Swollen tongue [Unknown]
  - Oropharyngeal discomfort [Unknown]
  - Pharyngeal disorder [Unknown]
  - Allergic pharyngitis [Unknown]
  - Dry mouth [Unknown]
  - Pharyngitis [Unknown]
  - Bone pain [Unknown]
